FAERS Safety Report 17359018 (Version 1)
Quarter: 2020Q1

REPORT INFORMATION
  Report Type: Report from Study
  Country: None (occurrence: GB)
  Receive Date: 20200202
  Receipt Date: 20200202
  Transmission Date: 20200409
  Serious: Yes (Other)
  Sender: FDA-Public Use
  Company Number: GB-ABBVIE-20K-167-3256237-00

PATIENT
  Sex: Male

DRUGS (1)
  1. MAVIRET [Suspect]
     Active Substance: GLECAPREVIR\PIBRENTASVIR
     Indication: PRODUCT USED FOR UNKNOWN INDICATION
     Dosage: 3 UNITS
     Route: 048
     Dates: start: 201910

REACTIONS (4)
  - Chronic hepatitis C [Unknown]
  - Type 2 diabetes mellitus [Unknown]
  - Hepatic cirrhosis [Unknown]
  - Pathogen resistance [Unknown]
